FAERS Safety Report 7076379-1 (Version None)
Quarter: 2010Q4

REPORT INFORMATION
  Report Type: 
  Country: None (occurrence: None)
  Receive Date: 20101101
  Receipt Date: 20101022
  Transmission Date: 20110411
  Serious: Yes (Other)
  Sender: FDA-Public Use
  Company Number: CA-ASTRAZENECA-2010SE50725

PATIENT
  Age: 73 Year
  Sex: Male

DRUGS (3)
  1. SYMBICORT [Suspect]
     Route: 055
     Dates: start: 20091101
  2. SYMBICORT [Suspect]
     Dosage: 200 MCG 2 PUFFS
     Route: 055
     Dates: start: 20101019
  3. SPIRIVA [Concomitant]

REACTIONS (3)
  - HAEMOPTYSIS [None]
  - PYREXIA [None]
  - TREMOR [None]
